FAERS Safety Report 8396768-2 (Version None)
Quarter: 2012Q1

REPORT INFORMATION
  Report Type: 
  Country: None (occurrence: None)
  Receive Date: 20120323
  Receipt Date: 20110415
  Transmission Date: 20120608
  Serious: Yes (Other)
  Sender: FDA-Public Use
  Company Number: 163-21880-11042236

PATIENT
  Age: 82 Year
  Sex: Male

DRUGS (1)
  1. REVLIMID [Suspect]
     Indication: MULTIPLE MYELOMA
     Dosage: 20 MG, 2 CAP ONCE A DAY FOR 21 DAYS, PO
     Route: 048
     Dates: start: 20110103, end: 20110131

REACTIONS (1)
  - HAEMOGLOBIN DECREASED [None]
